FAERS Safety Report 9221198 (Version 1)
Quarter: 2013Q2

REPORT INFORMATION
  Report Type: Spontaneous
  Country: US (occurrence: US)
  Receive Date: 20130410
  Receipt Date: 20130410
  Transmission Date: 20140414
  Serious: No
  Sender: FDA-Public Use
  Company Number: US-009507513-1304USA002265

PATIENT
  Age: 55 Year
  Sex: Male
  Weight: 84.35 kg

DRUGS (6)
  1. PEGINTRON [Suspect]
     Dosage: 120 MCG/0.5 ML INJECTION, QW
     Route: 058
     Dates: start: 201303
  2. RIBAVIRIN [Suspect]
     Dosage: 300 MG, BID
  3. RIBAVIRIN [Suspect]
     Dosage: 200 MG, BID
  4. ADVIL [Concomitant]
     Dosage: 200 MG, UNK
  5. GINSENG (UNSPECIFIED) [Concomitant]
     Dosage: 100 MG, UNK
  6. METAMUCIL [Concomitant]
     Dosage: 28 %

REACTIONS (9)
  - Rectal haemorrhage [Recovering/Resolving]
  - Anorectal discomfort [Recovering/Resolving]
  - Vision blurred [Recovering/Resolving]
  - Irritability [Recovering/Resolving]
  - Anxiety [Recovering/Resolving]
  - Fatigue [Recovering/Resolving]
  - Dyspnoea [Recovering/Resolving]
  - Influenza like illness [Recovering/Resolving]
  - Headache [Recovering/Resolving]
